FAERS Safety Report 10634310 (Version 2)
Quarter: 2014Q4

REPORT INFORMATION
  Report Type: Spontaneous
  Country: IT (occurrence: IT)
  Receive Date: 20141205
  Receipt Date: 20141205
  Transmission Date: 20150529
  Serious: Yes (Hospitalization)
  Sender: FDA-Public Use
  Company Number: IT-TEVA-521833ISR

PATIENT
  Age: 38 Year
  Sex: Female

DRUGS (3)
  1. DELORAZEPAM [Suspect]
     Active Substance: DELORAZEPAM
     Indication: DEPRESSION
     Dosage: 10 G TOTAL
     Route: 048
     Dates: start: 20141104, end: 20141104
  2. MIRTAZAPINE. [Suspect]
     Active Substance: MIRTAZAPINE
     Indication: DEPRESSION
     Dosage: 450 MG TOTAL
     Route: 048
     Dates: start: 20141104, end: 20141104
  3. CYMBALTA - 60 MG CAPSULE RIGIDE GASTRORESISTENTI [Concomitant]
     Indication: PRODUCT USED FOR UNKNOWN INDICATION
     Dosage: 60 MG
     Route: 048

REACTIONS (3)
  - Toxicity to various agents [Recovered/Resolved]
  - Suicide attempt [Unknown]
  - Drug abuse [Recovered/Resolved]

NARRATIVE: CASE EVENT DATE: 20141104
